FAERS Safety Report 25895877 (Version 1)
Quarter: 2025Q4

REPORT INFORMATION
  Report Type: Spontaneous
  Country: US (occurrence: None)
  Receive Date: 20251007
  Receipt Date: 20251007
  Transmission Date: 20260119
  Serious: No
  Sender: FDA-CTU
  Company Number: None

PATIENT
  Age: 80 Year
  Sex: Male
  Weight: 81 kg

DRUGS (12)
  1. LEQVIO [Suspect]
     Active Substance: INCLISIRAN SODIUM
     Indication: Blood cholesterol increased
     Dates: start: 20250224, end: 20250910
  2. amiodipine 10ml 1 daily [Concomitant]
  3. dorzolamide 22,3mg 1 drop each eye twwice daily [Concomitant]
  4. latanoprost .005% 1drop both eyes daily [Concomitant]
  5. ezetimibe 10 ml 1 daily [Concomitant]
  6. famotidine 40ml 1 daily [Concomitant]
  7. hydrochiorothiazide 25 ml 1 daily [Concomitant]
  8. metoprolol succinate 25ml 1 daily [Concomitant]
  9. amoxicillin 500 mg 4 per dentist visit [Concomitant]
  10. ecotrin 325ml 1 daily [Concomitant]
  11. fish oil 1200ml 2 daily [Concomitant]
  12. d3 2000iu 1 daily [Concomitant]

REACTIONS (3)
  - Myalgia [None]
  - Productive cough [None]
  - Gait disturbance [None]

NARRATIVE: CASE EVENT DATE: 20250501
